FAERS Safety Report 24727081 (Version 6)
Quarter: 2025Q2

REPORT INFORMATION
  Report Type: Spontaneous
  Country: CA (occurrence: CA)
  Receive Date: 20241212
  Receipt Date: 20250509
  Transmission Date: 20250717
  Serious: No
  Sender: PFIZER
  Company Number: CA-PFIZER INC-202400323534

PATIENT
  Age: 35 Year
  Sex: Female

DRUGS (1)
  1. FRAGMIN [Suspect]
     Active Substance: DALTEPARIN SODIUM

REACTIONS (2)
  - Device operational issue [Unknown]
  - Drug dose omission by device [Unknown]
